FAERS Safety Report 8252170-5 (Version None)
Quarter: 2012Q2

REPORT INFORMATION
  Report Type: 
  Country: None (occurrence: None)
  Receive Date: 20120402
  Receipt Date: 20110415
  Transmission Date: 20120825
  Serious: No
  Sender: FDA-Public Use
  Company Number: US-ABBOTT-11P-163-0804442-00

PATIENT
  Sex: Male
  Weight: 90.909 kg

DRUGS (8)
  1. EFAVIRENZ [Concomitant]
     Indication: HIV INFECTION
     Dosage: DAILY DOSE:  UNKNOWN
     Route: 065
  2. BUPROPION HYDROCHLORIDE [Concomitant]
     Indication: DEPRESSION
     Dosage: DAILY DOSE:  UNKNOWN
     Route: 065
  3. ACICLOVIR [Concomitant]
     Indication: GENITAL HERPES
     Dosage: DAILY DOSE:  UNKNOWN
     Route: 065
  4. ZOLPIDEM TARTRATE [Concomitant]
     Indication: INSOMNIA
     Dosage: DAILY DOSE:  UNKNOWN
     Route: 065
  5. FISH OIL [Concomitant]
     Indication: MEDICAL DIET
     Dosage: DAILY DOSE:  UNKNOWN
     Route: 065
  6. ACETYLSALICYLIC ACID [Concomitant]
     Indication: PROPHYLAXIS
     Dosage: DAILY DOSE:  UNKNOWN
     Route: 065
  7. TESTOSTERONE [Suspect]
     Indication: BLOOD TESTOSTERONE DECREASED
     Dosage: DAILY DOSE: 7.5 GRAM(S)
     Route: 062
     Dates: start: 20110201
  8. SILDENAFIL CITRATE [Concomitant]
     Indication: PRODUCT USED FOR UNKNOWN INDICATION
     Dosage: DAILY DOSE:  UNKNOWN; FREQUENCY: AS NEEDED
     Route: 065

REACTIONS (1)
  - DRY SKIN [None]
